FAERS Safety Report 19919002 (Version 2)
Quarter: 2024Q2

REPORT INFORMATION
  Report Type: Other
  Country: IT (occurrence: None)
  Receive Date: 20211005
  Receipt Date: 20240525
  Transmission Date: 20240716
  Serious: Yes (Other)
  Sender: FDA-Public Use
  Company Number: IT-ROCHE-2822991

PATIENT

DRUGS (6)
  1. TOCILIZUMAB [Suspect]
     Active Substance: TOCILIZUMAB
     Indication: COVID-19 pneumonia
     Route: 042
  2. OSELTAMIVIR [Suspect]
     Active Substance: OSELTAMIVIR
     Indication: COVID-19 pneumonia
     Route: 065
  3. HYDROXYCHLOROQUINE [Concomitant]
     Active Substance: HYDROXYCHLOROQUINE
     Route: 048
  4. DARUNAVIR [Concomitant]
     Active Substance: DARUNAVIR
  5. RITONAVIR [Concomitant]
     Active Substance: RITONAVIR
  6. METHYLPREDNISOLONE [Concomitant]
     Active Substance: METHYLPREDNISOLONE
     Dosage: FOLLOWED BY 0.5 MG/KG FOR ANOTHER 5 DAYS

REACTIONS (3)
  - Pneumonia [Unknown]
  - Haematological infection [Unknown]
  - Off label use [Unknown]
